FAERS Safety Report 8302403 (Version 3)
Quarter: 2013Q2

REPORT INFORMATION
  Report Type: Spontaneous
  Country: US (occurrence: US)
  Receive Date: 20111220
  Receipt Date: 20130509
  Transmission Date: 20140414
  Serious: Yes (Other)
  Sender: FDA-Public Use
  Company Number: US-BAYER-2011-103563

PATIENT
  Age: 44 Year
  Sex: Female

DRUGS (6)
  1. AVELOX [Suspect]
     Indication: SINUSITIS
     Dosage: 400 MG, QD
     Route: 048
     Dates: start: 20110928, end: 20111003
  2. SERZONE [Concomitant]
  3. GABAPENTIN [Concomitant]
  4. LOESTRIN [Concomitant]
  5. CELEBREX [Concomitant]
  6. AMBIEN [Concomitant]

REACTIONS (19)
  - Headache [Not Recovered/Not Resolved]
  - Vomiting [Not Recovered/Not Resolved]
  - Back pain [Not Recovered/Not Resolved]
  - Arthralgia [Not Recovered/Not Resolved]
  - Uterine disorder [None]
  - Tendonitis [None]
  - Walking distance test abnormal [None]
  - Tendonitis [None]
  - Walking aid user [None]
  - Nausea [None]
  - Pain [None]
  - Malaise [None]
  - Migraine [None]
  - Pain [None]
  - Uterine disorder [None]
  - Anxiety [None]
  - Pain [None]
  - Gait disturbance [None]
  - Motor dysfunction [None]
